FAERS Safety Report 21260465 (Version 1)
Quarter: 2022Q3

REPORT INFORMATION
  Report Type: Spontaneous
  Country: GB (occurrence: GB)
  Receive Date: 20220826
  Receipt Date: 20220826
  Transmission Date: 20221027
  Serious: Yes (Hospitalization, Other)
  Sender: FDA-Public Use
  Company Number: None

PATIENT

DRUGS (2)
  1. BUPRENORPHINE [Suspect]
     Active Substance: BUPRENORPHINE
     Indication: Product used for unknown indication
     Dosage: 12 MILLIGRAM, QD
     Route: 060
  2. BUPRENORPHINE [Suspect]
     Active Substance: BUPRENORPHINE
     Indication: Product used for unknown indication
     Dosage: 24 MILLIGRAM, QWK (PROLONGED RELEASE SOLUTION FOR INJECTION)
     Route: 051

REACTIONS (6)
  - Road traffic accident [Recovered/Resolved]
  - Confusional state [Unknown]
  - Hallucination [Unknown]
  - Dizziness [Unknown]
  - Colloid brain cyst [Not Recovered/Not Resolved]
  - Product dose omission issue [Unknown]
